FAERS Safety Report 25821581 (Version 1)
Quarter: 2025Q3

REPORT INFORMATION
  Report Type: Report from Study
  Country: JP (occurrence: JP)
  Receive Date: 20250919
  Receipt Date: 20250919
  Transmission Date: 20251020
  Serious: Yes (Other)
  Sender: TAKEDA
  Company Number: JP-TAKEDA-2022TJP077227

PATIENT
  Age: 47 Year
  Sex: Female
  Weight: 50 kg

DRUGS (9)
  1. LANADELUMAB [Suspect]
     Active Substance: LANADELUMAB
     Indication: Hereditary angioedema with normal C1 esterase inhibitor
     Dates: start: 20230630, end: 20230630
  2. LANADELUMAB [Suspect]
     Active Substance: LANADELUMAB
     Dates: start: 20231215, end: 20231215
  3. FIRAZYR [Suspect]
     Active Substance: ICATIBANT ACETATE
     Indication: Hereditary angioedema with normal C1 esterase inhibitor
  4. FIRAZYR [Suspect]
     Active Substance: ICATIBANT ACETATE
  5. ORLADEYO [Suspect]
     Active Substance: BEROTRALSTAT HYDROCHLORIDE
     Indication: Product used for unknown indication
  6. BERINERT P [Concomitant]
     Active Substance: HUMAN C1-ESTERASE INHIBITOR
     Indication: Hereditary angioedema with normal C1 esterase inhibitor
  7. BERINERT P [Concomitant]
     Active Substance: HUMAN C1-ESTERASE INHIBITOR
     Dosage: UNK, Q2WEEKS
     Dates: start: 202411
  8. BERINERT [Concomitant]
     Active Substance: HUMAN C1-ESTERASE INHIBITOR
     Indication: Prophylaxis
  9. BERINERT [Concomitant]
     Active Substance: HUMAN C1-ESTERASE INHIBITOR

REACTIONS (38)
  - Mental impairment [Unknown]
  - Physical deconditioning [Unknown]
  - Malaise [Unknown]
  - Allergy to animal [Unknown]
  - Physical deconditioning [Unknown]
  - Urticaria [Recovered/Resolved]
  - Headache [Recovered/Resolved]
  - Nausea [Recovered/Resolved]
  - Nausea [Unknown]
  - Headache [Unknown]
  - Dental caries [Unknown]
  - Injection site pain [Unknown]
  - Injection site pain [Recovered/Resolved]
  - Injection site pain [Unknown]
  - Diarrhoea [Unknown]
  - Malaise [Unknown]
  - Physical deconditioning [Unknown]
  - Malaise [Unknown]
  - Nausea [Unknown]
  - Injection site pain [Unknown]
  - Injection site erythema [Unknown]
  - Injection site pain [Unknown]
  - Injection site pruritus [Unknown]
  - Urticaria [Unknown]
  - Infusion site pain [Unknown]
  - Injection site pain [Unknown]
  - Injection site pain [Unknown]
  - Feeling abnormal [Unknown]
  - Dysmenorrhoea [Unknown]
  - Hereditary angioedema [Unknown]
  - Abdominal distension [Unknown]
  - Dysphonia [Unknown]
  - Nausea [Unknown]
  - Memory impairment [Unknown]
  - Feeling abnormal [Unknown]
  - Malaise [Unknown]
  - Therapeutic product effect decreased [Unknown]
  - Therapeutic response shortened [Unknown]

NARRATIVE: CASE EVENT DATE: 20221101
